FAERS Safety Report 9524614 (Version 1)
Quarter: 2013Q1

REPORT INFORMATION
  Report Type: Spontaneous
  Country: US (occurrence: None)
  Receive Date: 20130305
  Receipt Date: 20130305
  Transmission Date: 20140127
  Serious: Yes (Hospitalization)
  Sender: FDA-Public Use
  Company Number: 163-21880-12020644

PATIENT
  Age: 69 Year
  Sex: Male

DRUGS (11)
  1. REVLIMID [Suspect]
     Indication: PLASMA CELL MYELOMA
     Route: 048
     Dates: start: 20120104, end: 20120201
  2. CHEMOTHERAPY (CHEMOTHERAPEUTICS NOS) [Concomitant]
  3. VELCADE [Concomitant]
  4. DECADRON (DEXAMETHASONE) [Concomitant]
  5. ZOMETA (ZOLEDRONIC ACID) [Concomitant]
  6. COUMADIN (WARFARIN SODIUM) [Concomitant]
  7. GABAPENTIN [Concomitant]
  8. ACYCLOVIR (ACICLOVIR) [Concomitant]
  9. TRAZODONE (TRAZODONE) [Concomitant]
  10. FENTANYL (FENTANYL) [Concomitant]
  11. XANAX (ALPRAZOLAM) [Concomitant]

REACTIONS (1)
  - Pleural effusion [None]
